FAERS Safety Report 5524936-3 (Version None)
Quarter: 2007Q4

REPORT INFORMATION
  Report Type: 
  Country: None (occurrence: None)
  Receive Date: 20071126
  Receipt Date: 20071114
  Transmission Date: 20080405
  Serious: Yes (Hospitalization)
  Sender: FDA-Public Use
  Company Number: JP-JNJFOC-20071005465

PATIENT
  Sex: Female

DRUGS (9)
  1. CRAVIT [Suspect]
     Indication: PERITONSILLAR ABSCESS
     Route: 048
  2. MEIACT [Suspect]
     Indication: PERITONSILLAR ABSCESS
     Route: 048
  3. DALACIN S [Concomitant]
     Route: 042
  4. ROCEPHIN [Concomitant]
     Route: 042
  5. SOLU-CORTEF [Concomitant]
     Route: 042
  6. SOLU-CORTEF [Concomitant]
     Indication: PERITONSILLAR ABSCESS
     Route: 042
  7. ALLELOCK [Concomitant]
     Route: 065
  8. ALESION [Concomitant]
     Route: 065
  9. VOLTAREN [Concomitant]
     Route: 065

REACTIONS (2)
  - ANAPHYLACTIC SHOCK [None]
  - RASH [None]
